FAERS Safety Report 25910737 (Version 1)
Quarter: 2025Q4

REPORT INFORMATION
  Report Type: Spontaneous
  Country: EU (occurrence: EU)
  Receive Date: 20251013
  Receipt Date: 20251013
  Transmission Date: 20260118
  Serious: Yes (Other)
  Sender: TEVA
  Company Number: None

PATIENT
  Age: 69 Year
  Sex: Male

DRUGS (8)
  1. AMLODIPINE [Suspect]
     Active Substance: AMLODIPINE BESYLATE
     Indication: Hypertension
     Route: 048
  2. TRAMADOL [Suspect]
     Active Substance: TRAMADOL
     Indication: Pain
     Dosage: TIME INTERVAL: AS NECESSARY: IF NECESSARY; TRAMADOL BASE
     Route: 048
     Dates: start: 20250707
  3. HERBALS\SAW PALMETTO [Suspect]
     Active Substance: HERBALS\SAW PALMETTO
     Indication: Micturition disorder
     Route: 048
     Dates: start: 20250707
  4. FOSFOMYCIN TROMETHAMINE [Concomitant]
     Active Substance: FOSFOMYCIN TROMETHAMINE
     Indication: Prophylaxis
     Dosage: TIME INTERVAL: TOTAL: 1 ADMINISTRATION; MONURIL ADULTS
     Route: 048
     Dates: start: 20250718, end: 20250718
  5. ALFUZOSIN [Suspect]
     Active Substance: ALFUZOSIN
     Indication: Benign prostatic hyperplasia
     Dosage: 1/DAY
     Route: 048
     Dates: start: 20250707
  6. FOLIC ACID [Suspect]
     Active Substance: FOLIC ACID
     Indication: Anaemia macrocytic
     Dosage: FOLIC ACID CCD
     Route: 048
     Dates: start: 20250707
  7. ACETAMINOPHEN [Suspect]
     Active Substance: ACETAMINOPHEN
     Indication: Pain
     Dosage: TIME INTERVAL: AS NECESSARY: IF NECESSARY; EFFERVESCENT SCORED TABLET
     Route: 048
     Dates: start: 20250707
  8. FIRMAGON [Suspect]
     Active Substance: DEGARELIX ACETATE
     Indication: Prostate cancer
     Dosage: TIME INTERVAL: TOTAL: 240 MG ONCE; POWDER AND SOLVENT FOR INJECTION SOLUTION
     Route: 058
     Dates: start: 20250719, end: 20250719

REACTIONS (1)
  - Neutropenia [Not Recovered/Not Resolved]

NARRATIVE: CASE EVENT DATE: 20250728
